FAERS Safety Report 22169325 (Version 8)
Quarter: 2023Q2

REPORT INFORMATION
  Report Type: Spontaneous
  Country: US (occurrence: US)
  Receive Date: 20230404
  Receipt Date: 20230606
  Transmission Date: 20230721
  Serious: No
  Sender: FDA-Public Use
  Company Number: US-UNITED THERAPEUTICS-UNT-2023-009134

PATIENT
  Age: 43 Year
  Sex: Female
  Weight: 74.83 kg

DRUGS (6)
  1. REMODULIN [Suspect]
     Active Substance: TREPROSTINIL
     Indication: Pulmonary arterial hypertension
     Dosage: 0.065 ?G/KG, CONTINUING
     Route: 058
  2. REMODULIN [Suspect]
     Active Substance: TREPROSTINIL
     Dosage: UNK, CONTINUING
     Route: 058
     Dates: start: 20181025
  3. CELLCEPT [Suspect]
     Active Substance: MYCOPHENOLATE MOFETIL
     Indication: Product used for unknown indication
     Dosage: UNK
     Route: 065
  4. OPSUMIT [Concomitant]
     Active Substance: MACITENTAN
     Indication: Product used for unknown indication
     Dosage: UNK
     Route: 065
  5. SILDENAFIL [Concomitant]
     Active Substance: SILDENAFIL
     Indication: Product used for unknown indication
     Dosage: UNK
     Route: 065
  6. XARELTO [Concomitant]
     Active Substance: RIVAROXABAN
     Indication: Product used for unknown indication
     Dosage: UNK
     Route: 065

REACTIONS (23)
  - Infusion site haemorrhage [Recovered/Resolved]
  - Device infusion issue [Recovered/Resolved]
  - Infusion site erythema [Unknown]
  - Infusion site pain [Unknown]
  - Infusion site nodule [Recovering/Resolving]
  - Dyspnoea exertional [Unknown]
  - Infusion site discharge [Unknown]
  - Dyspnoea [Unknown]
  - Infusion site reaction [Unknown]
  - Migraine [Recovered/Resolved]
  - Infusion site discolouration [Unknown]
  - Product leakage [Recovered/Resolved]
  - Device issue [Recovered/Resolved]
  - Rash [Unknown]
  - Exposure via skin contact [Unknown]
  - Bone disorder [Unknown]
  - Paraesthesia [Unknown]
  - Visual impairment [Unknown]
  - Accidental exposure to product [Unknown]
  - Erythema [Unknown]
  - Skin irritation [Unknown]
  - Diarrhoea [Recovered/Resolved]
  - Palpitations [Unknown]

NARRATIVE: CASE EVENT DATE: 20230401
